FAERS Safety Report 4932832-5 (Version None)
Quarter: 2006Q1

REPORT INFORMATION
  Report Type: 
  Country: None (occurrence: None)
  Receive Date: 20060306
  Receipt Date: 20060221
  Transmission Date: 20060701
  Serious: Yes (Other)
  Sender: FDA-Public Use
  Company Number: PHMT2006CA00742

PATIENT
  Age: 47 Year
  Sex: Male

DRUGS (1)
  1. ZADITEN [Suspect]
     Dosage: 5 MG, UNK
     Route: 048
     Dates: start: 19960101

REACTIONS (3)
  - CRYSTAL URINE [None]
  - RENAL FAILURE [None]
  - URINE COLOUR ABNORMAL [None]
